FAERS Safety Report 9115774 (Version 1)
Quarter: 2013Q1

REPORT INFORMATION
  Report Type: Spontaneous
  Country: ES (occurrence: ES)
  Receive Date: 20130224
  Receipt Date: 20130224
  Transmission Date: 20140127
  Serious: Yes (Other)
  Sender: FDA-Public Use
  Company Number: ES-TEVA-387076ISR

PATIENT
  Age: 37 Year
  Sex: Male

DRUGS (3)
  1. CEFUROXIM [Suspect]
     Indication: URINARY TRACT INFECTION
     Dosage: 1000 MILLIGRAM DAILY;
     Route: 048
     Dates: start: 20120704, end: 2012
  2. IBUPROFENO TARBIS 600 MG COMPRIMIDOS RECUBIERTOS CON PEL?CULA. [Concomitant]
     Indication: PYREXIA
     Dosage: 1800 MILLIGRAM DAILY;
     Route: 048
     Dates: start: 20120704
  3. PARACETAMOL 1 G [Concomitant]
     Indication: PYREXIA
     Dosage: 3 GRAM DAILY;
     Route: 048
     Dates: start: 20120704

REACTIONS (3)
  - Arthralgia [Recovered/Resolved]
  - Local swelling [Recovered/Resolved]
  - Local swelling [Recovered/Resolved]
